FAERS Safety Report 6612601-0 (Version None)
Quarter: 2010Q1

REPORT INFORMATION
  Report Type: 
  Country: None (occurrence: None)
  Receive Date: 20100303
  Receipt Date: 20100222
  Transmission Date: 20100710
  Serious: Yes (Other)
  Sender: FDA-Public Use
  Company Number: BR-PFIZER INC-2010022561

PATIENT
  Age: 41 Year
  Sex: Female
  Weight: 69 kg

DRUGS (5)
  1. DEPO-PROVERA [Suspect]
     Indication: OFF LABEL USE
     Dosage: 150 MG, EVERY 3 MONTHS
     Route: 030
     Dates: start: 20100115
  2. DEPO-PROVERA [Suspect]
     Indication: ENDOMETRIOSIS
  3. BUDESONIDE/FORMOTEROL FUMARATE [Concomitant]
     Indication: ALLERGIC BRONCHITIS
     Dosage: UNK
  4. AMINOPHYLLINE [Concomitant]
     Indication: ALLERGIC BRONCHITIS
     Dosage: UNK
  5. SALBUTAMOL SULFATE [Concomitant]
     Indication: ALLERGIC BRONCHITIS
     Dosage: UNK

REACTIONS (2)
  - ALLERGIC BRONCHITIS [None]
  - CONDITION AGGRAVATED [None]
